FAERS Safety Report 6675541-7 (Version None)
Quarter: 2010Q2

REPORT INFORMATION
  Report Type: 
  Country: None (occurrence: None)
  Receive Date: 20100409
  Receipt Date: 20100330
  Transmission Date: 20101027
  Serious: Yes (Other)
  Sender: FDA-Public Use
  Company Number: JP-PFIZER INC-2010042310

PATIENT
  Age: 66 Year
  Sex: Female

DRUGS (3)
  1. CHAMPIX [Suspect]
     Dates: start: 20100222
  2. MYSLEE [Concomitant]
  3. LITHIUM CARBONATE [Concomitant]

REACTIONS (1)
  - RENAL IMPAIRMENT [None]
